FAERS Safety Report 6569451-3 (Version None)
Quarter: 2010Q1

REPORT INFORMATION
  Report Type: 
  Country: None (occurrence: None)
  Receive Date: 20100204
  Receipt Date: 20100125
  Transmission Date: 20100710
  Serious: Yes (Other)
  Sender: FDA-Public Use
  Company Number: US-JNJFOC-20091106078

PATIENT
  Sex: Female
  Weight: 51.71 kg

DRUGS (9)
  1. REMICADE [Suspect]
     Indication: COLITIS ULCERATIVE
     Route: 042
  2. REMICADE [Suspect]
     Route: 042
  3. REMICADE [Suspect]
     Route: 042
  4. PREDNISONE [Concomitant]
     Indication: COLITIS ULCERATIVE
  5. METRONIDAZOLE [Concomitant]
  6. LOMOTIL [Concomitant]
     Indication: COLITIS ULCERATIVE
  7. COLAZAL [Concomitant]
     Indication: COLITIS ULCERATIVE
  8. LIALDA [Concomitant]
     Indication: COLITIS ULCERATIVE
  9. URSO 250 [Concomitant]
     Indication: CHOLANGITIS SCLEROSING

REACTIONS (2)
  - CARDIOMEGALY [None]
  - PERICARDIAL EFFUSION [None]
